FAERS Safety Report 5660038-3 (Version None)
Quarter: 2008Q1

REPORT INFORMATION
  Report Type: 
  Country: None (occurrence: None)
  Receive Date: 20080311
  Receipt Date: 20080229
  Transmission Date: 20080703
  Serious: Yes (Life-Threatening, Hospitalization, Other)
  Sender: FDA-Public Use
  Company Number: HQWYE400229MAY07

PATIENT
  Sex: Male
  Weight: 75 kg

DRUGS (8)
  1. MYLOTARG [Suspect]
     Indication: ACUTE MYELOID LEUKAEMIA RECURRENT
     Route: 041
     Dates: start: 20070312, end: 20070312
  2. MYLOTARG [Suspect]
     Route: 041
     Dates: start: 20070327, end: 20070327
  3. FAMOTIDINE [Concomitant]
     Indication: PROPHYLAXIS
     Route: 048
     Dates: start: 20070202
  4. PREDONINE [Concomitant]
     Route: 048
     Dates: start: 20070323
  5. CRAVIT [Concomitant]
     Indication: PROPHYLAXIS
     Route: 048
     Dates: start: 20070202
  6. ENDOXAN [Concomitant]
     Indication: ACUTE MYELOID LEUKAEMIA RECURRENT
     Dosage: NOT PROVIDED
     Route: 048
     Dates: start: 20040126, end: 20070725
  7. BAKTAR [Concomitant]
     Indication: PROPHYLAXIS
     Route: 048
     Dates: start: 20070202
  8. FLUCONAZOLE [Concomitant]
     Indication: PROPHYLAXIS
     Route: 048
     Dates: start: 20070202

REACTIONS (5)
  - CARDIAC FAILURE CONGESTIVE [None]
  - NEUTROPHIL COUNT DECREASED [None]
  - PLATELET COUNT DECREASED [None]
  - PNEUMONIA [None]
  - WHITE BLOOD CELL COUNT DECREASED [None]
